FAERS Safety Report 9341486 (Version 2)
Quarter: 2013Q2

REPORT INFORMATION
  Report Type: Spontaneous
  Country: US (occurrence: US)
  Receive Date: 20130611
  Receipt Date: 20130619
  Transmission Date: 20140414
  Serious: Yes (Death, Other)
  Sender: FDA-Public Use
  Company Number: US-AMGEN-USASP2013040574

PATIENT
  Sex: 0

DRUGS (3)
  1. PEGFILGRASTIM [Suspect]
     Indication: SMALL CELL LUNG CANCER EXTENSIVE STAGE
     Dosage: ON DAY 4 OF EACH CYCLE; (6 MG-2), Q3WK
     Route: 058
  2. AMRUBICIN HYDROCHLORIDE [Suspect]
     Indication: SMALL CELL LUNG CANCER EXTENSIVE STAGE
     Dosage: ON DAY 1 TO 3; 30 MG/M2, Q3WK
     Route: 042
  3. CARBOPLATIN [Suspect]
     Indication: SMALL CELL LUNG CANCER EXTENSIVE STAGE
     Dosage: AUC 5; ON DAY 1; Q3WK
     Route: 042

REACTIONS (6)
  - Sepsis [Fatal]
  - Pneumonia aspiration [Fatal]
  - Thrombocytopenia [Unknown]
  - Neutropenia [Unknown]
  - Febrile neutropenia [Unknown]
  - Anaemia [Unknown]
